FAERS Safety Report 8133236-7 (Version None)
Quarter: 2012Q1

REPORT INFORMATION
  Report Type: 
  Country: None (occurrence: None)
  Receive Date: 20120207
  Receipt Date: 20120201
  Transmission Date: 20120608
  Serious: Yes (Hospitalization)
  Sender: FDA-Public Use
  Company Number: 2011AP002842

PATIENT
  Age: 55 Year
  Sex: Male

DRUGS (4)
  1. BISOPROLOL FUMARATE [Concomitant]
  2. VALSARTAN [Concomitant]
  3. OMEPRAZOLE [Suspect]
     Indication: HIATUS HERNIA
     Dosage: 20 MG; QD
  4. VENLAFAXINE [Concomitant]

REACTIONS (12)
  - DIARRHOEA [None]
  - ABDOMINAL PAIN UPPER [None]
  - ELECTROCARDIOGRAM QT PROLONGED [None]
  - NAUSEA [None]
  - TREMOR [None]
  - GASTRITIS [None]
  - PARAESTHESIA [None]
  - HYPOMAGNESAEMIA [None]
  - HYPOCALCAEMIA [None]
  - BARRETT'S OESOPHAGUS [None]
  - HYPOKALAEMIA [None]
  - VOMITING [None]
